FAERS Safety Report 5361489-7 (Version None)
Quarter: 2007Q2

REPORT INFORMATION
  Report Type: 
  Country: None (occurrence: None)
  Receive Date: 20070530
  Receipt Date: 20070108
  Transmission Date: 20071010
  Serious: No
  Sender: FDA-Public Use
  Company Number: 2007PV027635

PATIENT
  Age: 56 Year
  Sex: Female
  Weight: 113.3993 kg

DRUGS (10)
  1. BYETTA [Suspect]
     Indication: DIABETES MELLITUS NON-INSULIN-DEPENDENT
     Dosage: 5 MCG;BID;SC; 5 MCG;QID;SC
     Route: 058
     Dates: start: 20061229, end: 20061231
  2. BYETTA [Suspect]
     Indication: DIABETES MELLITUS NON-INSULIN-DEPENDENT
     Dosage: 5 MCG;BID;SC; 5 MCG;QID;SC
     Route: 058
     Dates: start: 20070101
  3. LANTUS [Concomitant]
  4. METFORMIN HCL [Concomitant]
  5. PRANDIN [Concomitant]
  6. FUROSEMIDE [Concomitant]
  7. SPIRONOLACTONE [Concomitant]
  8. GABAPENTIN [Concomitant]
  9. NEURONTIN [Concomitant]
  10. HUMULIN 70/30 [Concomitant]

REACTIONS (8)
  - BLOOD GLUCOSE ABNORMAL [None]
  - BLOOD GLUCOSE INCREASED [None]
  - DRUG INEFFECTIVE [None]
  - FLUID RETENTION [None]
  - NAUSEA [None]
  - NEUROPATHY [None]
  - PAIN [None]
  - PARAESTHESIA [None]
